FAERS Safety Report 10777606 (Version 4)
Quarter: 2019Q4

REPORT INFORMATION
  Report Type: Spontaneous
  Country: US (occurrence: US)
  Receive Date: 20150209
  Receipt Date: 20191220
  Transmission Date: 20200122
  Serious: Yes (Hospitalization)
  Sender: FDA-Public Use
  Company Number: US-PFIZER INC-2015046957

PATIENT
  Age: 56 Year
  Sex: Male
  Weight: 77 kg

DRUGS (3)
  1. METFORMIN [Concomitant]
     Active Substance: METFORMIN HYDROCHLORIDE
     Indication: TYPE 2 DIABETES MELLITUS
     Dosage: 500 MG, 2X/DAY
     Dates: start: 1999, end: 2001
  2. NEURONTIN [Suspect]
     Active Substance: GABAPENTIN
     Indication: NEUROPATHY PERIPHERAL
     Dosage: 500 MG, 2X/DAY
     Dates: start: 1999
  3. METFORMIN [Concomitant]
     Active Substance: METFORMIN HYDROCHLORIDE
     Dosage: 1000 MG, 2X/DAY (TWO 500 MG IN THE MORNING AND TWO 500 MG IN THE EVENING)

REACTIONS (7)
  - Off label use [Unknown]
  - Drug ineffective for unapproved indication [Unknown]
  - Poor quality sleep [Not Recovered/Not Resolved]
  - Limb discomfort [Recovered/Resolved]
  - Decreased appetite [Recovered/Resolved]
  - Weight decreased [Recovered/Resolved]
  - Somnolence [Not Recovered/Not Resolved]

NARRATIVE: CASE EVENT DATE: 1999
